FAERS Safety Report 9982850 (Version 1)
Quarter: 2014Q1

REPORT INFORMATION
  Report Type: Report from Study
  Country: US (occurrence: US)
  Receive Date: 20140307
  Receipt Date: 20140307
  Transmission Date: 20141002
  Serious: No
  Sender: FDA-Public Use
  Company Number: US-ABBVIE-13P-163-1181177-00

PATIENT
  Age: 53 Year
  Sex: Female
  Weight: 93.07 kg

DRUGS (3)
  1. HUMIRA [Suspect]
     Indication: PSORIASIS
     Dosage: ONE TIME DOSE
     Route: 058
     Dates: start: 201306, end: 201306
  2. HUMIRA [Suspect]
     Dosage: ON DAY EIGHT
     Route: 058
     Dates: start: 201306, end: 201308
  3. HUMIRA [Suspect]
     Dosage: ONE TIME DOSE
     Route: 058
     Dates: start: 20131214, end: 20131214

REACTIONS (1)
  - Paraesthesia [Recovered/Resolved]
